FAERS Safety Report 11433595 (Version 2)
Quarter: 2017Q3

REPORT INFORMATION
  Report Type: Spontaneous
  Country: ES (occurrence: ES)
  Receive Date: 20150831
  Receipt Date: 20170721
  Transmission Date: 20171127
  Serious: Yes (Life-Threatening, Hospitalization, Other)
  Sender: FDA-Public Use
  Company Number: ES-MACLEODS PHARMACEUTICALS US LTD-MAC2015001956

PATIENT

DRUGS (5)
  1. LEVOFLOXACIN. [Suspect]
     Active Substance: LEVOFLOXACIN
     Indication: STENOTROPHOMONAS INFECTION
     Dosage: 8.5 MG/KG, BID (EVERY 12 H)
     Route: 065
  2. MEROPENEM. [Concomitant]
     Active Substance: MEROPENEM
     Indication: KLEBSIELLA INFECTION
     Dosage: UNK
     Route: 065
  3. DOPAMINE [Concomitant]
     Active Substance: DOPAMINE\DOPAMINE HYDROCHLORIDE
     Indication: HAEMODYNAMIC INSTABILITY
     Dosage: 20 ?G/KG/MIN
     Route: 065
  4. COTRIMOXAZOLE [Concomitant]
     Active Substance: SULFAMETHOXAZOLE\TRIMETHOPRIM
     Indication: STENOTROPHOMONAS INFECTION
     Dosage: 5 MG/KG, QD
     Route: 065
  5. DOPAMINE [Concomitant]
     Active Substance: DOPAMINE\DOPAMINE HYDROCHLORIDE
     Indication: SEPTIC SHOCK
     Dosage: 10 ?G/KG/MIN
     Route: 065

REACTIONS (10)
  - Tachycardia [Recovered/Resolved]
  - Anuria [Recovered/Resolved]
  - Generalised oedema [Recovered/Resolved]
  - Shock [Recovered/Resolved]
  - Metabolic acidosis [Recovered/Resolved]
  - Off label use [Unknown]
  - Hyperlactacidaemia [Recovered/Resolved]
  - Haemodynamic instability [Recovered/Resolved]
  - Distributive shock [Recovered/Resolved]
  - Blood pressure decreased [Recovered/Resolved]
